FAERS Safety Report 12340798 (Version 1)
Quarter: 2016Q2

REPORT INFORMATION
  Report Type: Spontaneous
  Country: GB (occurrence: GB)
  Receive Date: 20160506
  Receipt Date: 20160506
  Transmission Date: 20160815
  Serious: Yes (Other)
  Sender: FDA-Public Use
  Company Number: GB-WATSON-2016-09344

PATIENT
  Age: 17 Year
  Sex: Female
  Weight: 64 kg

DRUGS (2)
  1. LAMOTRIGINE (UNKNOWN) [Suspect]
     Active Substance: LAMOTRIGINE
     Indication: JUVENILE MYOCLONIC EPILEPSY
     Dosage: UNK
     Route: 065
     Dates: start: 20151020
  2. MICROGYNON                         /00022701/ [Concomitant]
     Active Substance: ETHINYL ESTRADIOL\LEVONORGESTREL ACETATE
     Indication: PRODUCT USED FOR UNKNOWN INDICATION
     Dosage: 1 DF, DAILY; FOR 21 DAYS THEN 7 DAY BREAK
     Route: 065
     Dates: start: 20150909

REACTIONS (2)
  - Condition aggravated [Recovering/Resolving]
  - Myoclonus [Recovering/Resolving]

NARRATIVE: CASE EVENT DATE: 20160324
